FAERS Safety Report 9934581 (Version 2)
Quarter: 2014Q2

REPORT INFORMATION
  Report Type: Spontaneous
  Country: FI (occurrence: FI)
  Receive Date: 20140228
  Receipt Date: 20140402
  Transmission Date: 20141212
  Serious: Yes (Death)
  Sender: FDA-Public Use
  Company Number: FI-BRISTOL-MYERS SQUIBB COMPANY-20342176

PATIENT
  Age: 74 Year
  Sex: Female

DRUGS (11)
  1. FORXIGA [Suspect]
     Indication: TYPE 2 DIABETES MELLITUS
     Dosage: 04FEB2014, 5MG/DAY
     Dates: start: 20140204
  2. FURESIS [Concomitant]
     Dosage: PREVIOUS DOSE:04OCT13
     Dates: start: 20140110
  3. ORMOX [Concomitant]
     Dates: start: 20080212
  4. ORLOC [Concomitant]
     Dates: start: 20080212
  5. MICARDIS PLUS [Concomitant]
     Dates: start: 20100407
  6. JANUVIA [Concomitant]
     Dates: start: 20100407
  7. LIPITOR [Concomitant]
     Dates: start: 20101005
  8. PRIMASPAN [Concomitant]
     Dates: start: 20080212
  9. METFOREM [Concomitant]
     Dates: start: 20100407
  10. AMARYL [Concomitant]
     Dates: start: 20080212
  11. DINIT [Concomitant]
     Dates: start: 20120324

REACTIONS (1)
  - Myocardial infarction [Fatal]
